FAERS Safety Report 17749216 (Version 9)
Quarter: 2023Q1

REPORT INFORMATION
  Report Type: Report from Study
  Country: SE (occurrence: SE)
  Receive Date: 20200505
  Receipt Date: 20230305
  Transmission Date: 20230418
  Serious: Yes (Hospitalization, Other)
  Sender: FDA-Public Use
  Company Number: SE-CELLTRION INC.-2020SE021626

PATIENT

DRUGS (118)
  1. RITUXIMAB [Suspect]
     Active Substance: RITUXIMAB
     Indication: Non-Hodgkin^s lymphoma
     Dosage: 820 MILLIGRAM, QD
     Route: 042
     Dates: start: 20200318, end: 20200318
  2. RITUXIMAB [Suspect]
     Active Substance: RITUXIMAB
     Indication: B-cell lymphoma
     Dosage: ONCE
     Route: 042
  3. RITUXIMAB [Suspect]
     Active Substance: RITUXIMAB
     Indication: Follicular lymphoma
     Dosage: UNK
  4. ETOPOSIDE [Suspect]
     Active Substance: ETOPOSIDE
     Indication: Non-Hodgkin^s lymphoma
     Dosage: 876 MG PER DAY (219 MILLIGRAM, QID)
     Route: 042
     Dates: start: 20200316, end: 20200318
  5. ETOPOSIDE [Suspect]
     Active Substance: ETOPOSIDE
     Indication: B-cell lymphoma
     Dosage: 876 MG (219 MILLIGRAM QID)
     Route: 042
     Dates: start: 20200317, end: 20200317
  6. ETOPOSIDE [Suspect]
     Active Substance: ETOPOSIDE
     Indication: Follicular lymphoma
     Dosage: 400 MG PER DAY (100 MILLIGRAM, QID)
     Route: 042
     Dates: start: 20200501, end: 20200504
  7. ETOPOSIDE [Suspect]
     Active Substance: ETOPOSIDE
     Dosage: 219 MG (0.25 DAY)
     Route: 042
  8. ETOPOSIDE [Suspect]
     Active Substance: ETOPOSIDE
     Dosage: 876 MG (0.25 DAY)
     Route: 042
     Dates: start: 20200316, end: 20200318
  9. ETOPOSIDE [Suspect]
     Active Substance: ETOPOSIDE
     Dosage: 876 MILLIGRAM, 4X IN 1 DAY
     Route: 042
     Dates: start: 20200316, end: 20200318
  10. ETOPOSIDE [Suspect]
     Active Substance: ETOPOSIDE
     Dosage: UNK
  11. ETOPOSIDE [Suspect]
     Active Substance: ETOPOSIDE
     Dosage: 219 MILLIGRAM QID
     Route: 042
  12. ETOPOSIDE [Suspect]
     Active Substance: ETOPOSIDE
     Indication: Non-Hodgkin^s lymphoma
     Dosage: 219 MG, QID
     Route: 042
     Dates: start: 20200316, end: 20200318
  13. ETOPOSIDE [Suspect]
     Active Substance: ETOPOSIDE
     Dosage: 876 MG, QID
     Route: 042
     Dates: start: 20200316, end: 20200318
  14. ETOPOSIDE [Suspect]
     Active Substance: ETOPOSIDE
     Dosage: 100 MG, QID
     Route: 042
     Dates: start: 20200501, end: 20200504
  15. CARBOPLATIN [Suspect]
     Active Substance: CARBOPLATIN
     Indication: Follicular lymphoma
     Dosage: 575 MILLIGRAM, QD
     Route: 042
     Dates: start: 20200317
  16. IFOSFAMIDE [Suspect]
     Active Substance: IFOSFAMIDE
     Indication: Non-Hodgkin^s lymphoma
     Dosage: 10950 MG
     Route: 042
  17. IFOSFAMIDE [Suspect]
     Active Substance: IFOSFAMIDE
     Indication: B-cell lymphoma
     Dosage: 10950 MILLIGRAM, QD
     Route: 042
     Dates: start: 20200317, end: 20200318
  18. IFOSFAMIDE [Suspect]
     Active Substance: IFOSFAMIDE
     Indication: Follicular lymphoma
     Dosage: UNK
  19. CARBOPLATIN [Suspect]
     Active Substance: CARBOPLATIN
     Indication: Non-Hodgkin^s lymphoma
     Dosage: 575 MG
     Route: 042
  20. CARBOPLATIN [Suspect]
     Active Substance: CARBOPLATIN
     Indication: B-cell lymphoma
     Dosage: 575 MG, QD
     Route: 042
     Dates: start: 20200317, end: 20200317
  21. MELPHALAN [Suspect]
     Active Substance: MELPHALAN
     Indication: Non-Hodgkin^s lymphoma
     Dosage: 45 MILLIGRAM, QD
     Route: 042
     Dates: start: 20200430, end: 20200430
  22. CYTARABINE [Suspect]
     Active Substance: CYTARABINE
     Indication: Non-Hodgkin^s lymphoma
     Dosage: 430 MG PER DAY (215 MILLIGRAM, Q12H)
     Route: 042
     Dates: start: 20200501, end: 20200504
  23. CYTARABINE [Suspect]
     Active Substance: CYTARABINE
     Dosage: 215 MILLIGRAM, Q12H
     Route: 042
     Dates: start: 20200501, end: 20200504
  24. CARMUSTINE [Suspect]
     Active Substance: CARMUSTINE
     Indication: Non-Hodgkin^s lymphoma
     Dosage: 200 MILLIGRAM, QD
     Route: 042
     Dates: start: 20200429, end: 20200429
  25. PENICILLIN V [Concomitant]
     Active Substance: PENICILLIN V
     Indication: Product used for unknown indication
     Dosage: UNK
     Route: 065
  26. NITROGLYCERIN [Concomitant]
     Active Substance: NITROGLYCERIN
     Indication: Product used for unknown indication
     Dosage: UNK
     Route: 065
     Dates: start: 20200508
  27. TARGINIQ ER [Concomitant]
     Active Substance: NALOXONE HYDROCHLORIDE\OXYCODONE HYDROCHLORIDE
     Indication: Product used for unknown indication
     Dosage: 20 MILLIGRAM, BID
     Route: 065
     Dates: start: 20200323
  28. TARGINIQ ER [Concomitant]
     Active Substance: NALOXONE HYDROCHLORIDE\OXYCODONE HYDROCHLORIDE
     Dosage: UNK
     Route: 065
  29. SCHERIPROCT [CINCHOCAINE HYDROCHLORIDE;CLEMIZOLE UNDECYLENATE;HEXACHLO [Concomitant]
     Indication: Product used for unknown indication
     Dosage: UNK
     Route: 065
     Dates: start: 20200508
  30. HUMAN RED BLOOD CELL [Concomitant]
     Active Substance: HUMAN RED BLOOD CELL
     Indication: Product used for unknown indication
     Dosage: UNK
     Route: 065
  31. PLATELETS [Concomitant]
     Active Substance: HUMAN PLATELET, ALLOGENIC
     Indication: Product used for unknown indication
     Dosage: UNK
     Route: 065
  32. ACETAMINOPHEN [Concomitant]
     Active Substance: ACETAMINOPHEN
     Indication: Product used for unknown indication
     Dosage: UNK
     Route: 065
  33. MOVICOL [Concomitant]
     Active Substance: POLYETHYLENE GLYCOL 3350\POTASSIUM CHLORIDE\SODIUM BICARBONATE\SODIUM CHLORIDE
     Indication: Product used for unknown indication
     Dosage: UNK
     Route: 065
  34. BACTRIM [Concomitant]
     Active Substance: SULFAMETHOXAZOLE\TRIMETHOPRIM
     Indication: Product used for unknown indication
     Dosage: UNK
     Route: 065
  35. OXAZEPAM [Concomitant]
     Active Substance: OXAZEPAM
     Indication: Product used for unknown indication
     Dosage: UNK
     Route: 065
  36. CAFFEINE [Concomitant]
     Active Substance: CAFFEINE
     Indication: Product used for unknown indication
     Dosage: UNK
     Route: 065
  37. ATARAX [Concomitant]
     Active Substance: HYDROXYZINE HYDROCHLORIDE
     Indication: Product used for unknown indication
     Route: 065
  38. OXYCODONE HYDROCHLORIDE [Concomitant]
     Active Substance: OXYCODONE HYDROCHLORIDE
     Indication: Product used for unknown indication
     Dosage: UNK
     Route: 065
     Dates: start: 20200508
  39. OXYCODONE HYDROCHLORIDE [Concomitant]
     Active Substance: OXYCODONE HYDROCHLORIDE
     Indication: Femur fracture
     Dosage: 1 DOSAGE FORM, QD
     Route: 065
     Dates: start: 20200323
  40. OXYCODONE HYDROCHLORIDE [Concomitant]
     Active Substance: OXYCODONE HYDROCHLORIDE
     Dosage: UNK, PRN
     Route: 042
     Dates: start: 20200412
  41. FLUCONAZOLE [Concomitant]
     Active Substance: FLUCONAZOLE
     Dosage: UNK MG
     Route: 065
     Dates: start: 20200508
  42. PIPERACILLIN [Concomitant]
     Active Substance: PIPERACILLIN
     Indication: Product used for unknown indication
     Dosage: UNK
     Route: 065
  43. VALTREX [Concomitant]
     Active Substance: VALACYCLOVIR HYDROCHLORIDE
     Indication: Product used for unknown indication
     Dosage: UNK
     Route: 065
     Dates: start: 20200508
  44. MEROPENEM [Concomitant]
     Active Substance: MEROPENEM
     Indication: Product used for unknown indication
     Dosage: 3 GRAM, TID
     Route: 042
     Dates: start: 20200323, end: 20200331
  45. MEROPENEM [Concomitant]
     Active Substance: MEROPENEM
     Indication: Pyrexia
     Dosage: 3 GRAM, TID
     Route: 065
     Dates: start: 20200404, end: 20200411
  46. METOCLOPRAMIDE [Concomitant]
     Active Substance: METOCLOPRAMIDE
     Indication: Product used for unknown indication
     Dosage: 1 DOSAGE FORM, QD
     Route: 065
     Dates: start: 20200323
  47. FRAGMIN [Concomitant]
     Active Substance: DALTEPARIN SODIUM
     Indication: Product used for unknown indication
     Dosage: UNK UNK, QD (5000 IE)
     Route: 065
     Dates: start: 20200508
  48. FRAGMIN [Concomitant]
     Active Substance: DALTEPARIN SODIUM
     Dosage: UNK, BID
     Route: 065
     Dates: start: 20200227
  49. ORUDIS [Concomitant]
     Active Substance: KETOPROFEN
     Indication: Product used for unknown indication
     Dosage: 1 DOSAGE FORM, QD
     Route: 065
     Dates: start: 20200323
  50. DELTISON [PREDNISONE] [Concomitant]
     Indication: Product used for unknown indication
     Route: 065
  51. FILGRASTIM [Concomitant]
     Active Substance: FILGRASTIM
     Indication: Product used for unknown indication
     Dosage: 30 MILLIEQUIVALENT, QD
     Route: 065
     Dates: start: 20200323
  52. FILGRASTIM [Concomitant]
     Active Substance: FILGRASTIM
     Dosage: UNK
     Route: 065
     Dates: start: 20200323
  53. FILGRASTIM [Concomitant]
     Active Substance: FILGRASTIM
     Dosage: UNK
     Route: 065
  54. XYLOCAINE [Concomitant]
     Active Substance: LIDOCAINE HYDROCHLORIDE
     Indication: Product used for unknown indication
     Dosage: UNK
     Route: 065
  55. OMEPRAZOLE [Concomitant]
     Active Substance: OMEPRAZOLE
     Indication: Product used for unknown indication
     Dosage: UNK UNK, BID
     Route: 065
     Dates: start: 20200508
  56. ONDANSETRON [Concomitant]
     Active Substance: ONDANSETRON
     Indication: Product used for unknown indication
     Dosage: UNK
     Route: 065
  57. FUROSEMIDE [Concomitant]
     Active Substance: FUROSEMIDE
     Dosage: UNK
  58. OXYCONTIN [Concomitant]
     Active Substance: OXYCODONE HYDROCHLORIDE
     Indication: Product used for unknown indication
     Dosage: UNK
     Route: 065
  59. OXYCONTIN [Concomitant]
     Active Substance: OXYCODONE HYDROCHLORIDE
     Indication: Femur fracture
     Dosage: 120 MILLIGRAM, QD
     Route: 065
  60. ZOPICLONE [Concomitant]
     Active Substance: ZOPICLONE
     Indication: Product used for unknown indication
     Dosage: 1 DOSAGE FORM, QD
     Route: 065
     Dates: start: 20200323
  61. ZOPICLONE [Concomitant]
     Active Substance: ZOPICLONE
     Indication: Product used for unknown indication
     Route: 065
  62. AMITRIPTYLINE [Concomitant]
     Active Substance: AMITRIPTYLINE
     Indication: Product used for unknown indication
     Dosage: UNK
     Route: 065
     Dates: start: 20200508
  63. AMITRIPTYLINE [Concomitant]
     Active Substance: AMITRIPTYLINE
     Dosage: 1 DOSAGE FORM, QD
     Route: 065
     Dates: start: 20200323
  64. SODIUM BICARBONATE [Concomitant]
     Active Substance: SODIUM BICARBONATE
     Indication: Product used for unknown indication
     Dosage: 100 MILLILITER, QD
     Dates: start: 20200323
  65. PEVARYL [ECONAZOLE NITRATE] [Concomitant]
     Indication: Product used for unknown indication
     Dosage: UNK
     Route: 065
  66. VANCOMYCIN HYDROCHLORIDE [Concomitant]
     Active Substance: VANCOMYCIN HYDROCHLORIDE
     Indication: Product used for unknown indication
     Dosage: UNK
     Route: 065
  67. ALTEPLASE [Concomitant]
     Active Substance: ALTEPLASE
     Indication: Product used for unknown indication
     Dosage: UNK
     Route: 065
  68. CEFUROXIME [Concomitant]
     Active Substance: CEFUROXIME
     Indication: Product used for unknown indication
     Dosage: UNK, QD
     Route: 065
     Dates: start: 20200508
  69. CELEBRA [Concomitant]
     Active Substance: CELECOXIB
     Indication: Product used for unknown indication
     Dosage: UNK
     Route: 065
  70. SULFUR HEXAFLUORIDE [Concomitant]
     Active Substance: SULFUR HEXAFLUORIDE
     Indication: Product used for unknown indication
     Dosage: UNK
     Route: 065
  71. IMOVANE [Concomitant]
     Active Substance: ZOPICLONE
     Indication: Product used for unknown indication
     Dosage: UNK
     Route: 065
     Dates: start: 20200508
  72. REVLIMID [Concomitant]
     Active Substance: LENALIDOMIDE
     Indication: Product used for unknown indication
     Dosage: UNK
     Route: 065
  73. DEXAMETASON ABCUR [Concomitant]
     Indication: Product used for unknown indication
     Dosage: UNK
     Route: 065
  74. SODIUM PICOSULFATE [Concomitant]
     Active Substance: SODIUM PICOSULFATE
     Indication: Product used for unknown indication
     Dosage: UNK
     Route: 065
  75. SOLU-CORTEF [Concomitant]
     Active Substance: HYDROCORTISONE SODIUM SUCCINATE
     Indication: Product used for unknown indication
     Dosage: UNK
     Route: 065
  76. CALCIUM CHLORIDE\POTASSIUM CHLORIDE\SODIUM ACETATE [Concomitant]
     Active Substance: CALCIUM CHLORIDE\POTASSIUM CHLORIDE\SODIUM ACETATE
     Indication: Product used for unknown indication
     Dosage: 1000 MILLILITER
     Route: 065
     Dates: start: 20200509
  77. CYKLOKAPRON [Concomitant]
     Active Substance: TRANEXAMIC ACID
     Indication: Product used for unknown indication
     Dosage: UNK
     Route: 065
  78. NOVORAPID [Concomitant]
     Active Substance: INSULIN ASPART
     Indication: Product used for unknown indication
     Dosage: UNK
     Route: 065
  79. DIAZEPAM [Concomitant]
     Active Substance: DIAZEPAM
     Indication: Product used for unknown indication
     Dosage: UNK
     Route: 065
  80. LOPERAMIDE [Concomitant]
     Active Substance: LOPERAMIDE
     Indication: Product used for unknown indication
     Dosage: UNK
     Route: 065
  81. OXAZEPAM [Concomitant]
     Active Substance: OXAZEPAM
     Indication: Product used for unknown indication
     Dosage: UNK
     Route: 065
     Dates: start: 20200508
  82. PETIDIN MEDA [Concomitant]
     Indication: Product used for unknown indication
     Dosage: UNK
     Route: 065
  83. ALPRAZOLAM [Concomitant]
     Active Substance: ALPRAZOLAM
     Indication: Product used for unknown indication
     Dosage: UNK
     Route: 065
  84. OCULAC [Concomitant]
     Indication: Product used for unknown indication
     Dosage: 1 DOSAGE FORM, QD
     Route: 065
     Dates: start: 20200323
  85. RINGER ACETAT [Concomitant]
     Indication: Product used for unknown indication
     Dosage: 1000 MILLILITER, QD
     Route: 065
     Dates: start: 20200323
  86. VALTREX [Concomitant]
     Active Substance: VALACYCLOVIR HYDROCHLORIDE
     Indication: Product used for unknown indication
     Dosage: 2 DOSAGE FORM, BID
     Route: 065
     Dates: start: 20200323
  87. PIPERACILLIN AND TAZOBACTAM [Concomitant]
     Active Substance: PIPERACILLIN SODIUM\TAZOBACTAM SODIUM
     Indication: Pyrexia
     Dosage: 12 GRAM, TID
     Route: 065
     Dates: start: 20200331, end: 20200404
  88. PIPERACILLIN AND TAZOBACTAM [Concomitant]
     Active Substance: PIPERACILLIN SODIUM\TAZOBACTAM SODIUM
     Dosage: 1 DOSAGE FORM, QD
     Route: 065
     Dates: start: 20200323
  89. HUMAN RED BLOOD CELL [Concomitant]
     Active Substance: HUMAN RED BLOOD CELL
     Indication: Product used for unknown indication
     Dosage: 1 DOSAGE FORM, QD
     Route: 065
     Dates: start: 20200323
  90. RECTOGESIC [Concomitant]
     Indication: Product used for unknown indication
     Dosage: 4 MILLIGRAM PER GRAM, BID
     Dates: start: 20200323
  91. ACETAMINOPHEN [Concomitant]
     Active Substance: ACETAMINOPHEN
     Indication: Product used for unknown indication
     Dosage: 100 MILLIGRAM, QD
     Route: 065
     Dates: start: 20200323
  92. ACETAMINOPHEN [Concomitant]
     Active Substance: ACETAMINOPHEN
     Dosage: UNK UNK, 4 TIMES A DAY
     Route: 065
     Dates: start: 20200323
  93. MOVICOL [Concomitant]
     Active Substance: POLYETHYLENE GLYCOL 3350\POTASSIUM CHLORIDE\SODIUM BICARBONATE\SODIUM CHLORIDE
     Indication: Product used for unknown indication
     Dosage: 1 DOSAGE FORM, QD
     Route: 048
     Dates: start: 20200323
  94. MOVICOL [Concomitant]
     Active Substance: POLYETHYLENE GLYCOL 3350\POTASSIUM CHLORIDE\SODIUM BICARBONATE\SODIUM CHLORIDE
     Dosage: 3 DOSAGE FORM, QD
     Route: 048
     Dates: start: 20200323
  95. PREDNISONE [Concomitant]
     Active Substance: PREDNISONE
     Indication: Product used for unknown indication
     Dosage: 1 DOSAGE FORM, QD
     Route: 065
     Dates: start: 20200323
  96. ATARAX [Concomitant]
     Active Substance: HYDROXYZINE HYDROCHLORIDE
     Indication: Product used for unknown indication
     Dosage: 1 DOSAGE FORM, QD
     Route: 065
     Dates: start: 20200323
  97. FURIX [Concomitant]
     Indication: Product used for unknown indication
     Dosage: UNK, QD
     Dates: start: 20200323
  98. DIBUCAINE HYDROCHLORIDE\PREDNISOLONE [Concomitant]
     Active Substance: DIBUCAINE HYDROCHLORIDE\PREDNISOLONE
     Indication: Product used for unknown indication
     Dosage: 1.3 MILLIGRAM, TID
     Route: 065
     Dates: start: 20200323, end: 20200323
  99. DIBUCAINE HYDROCHLORIDE\PREDNISOLONE [Concomitant]
     Active Substance: DIBUCAINE HYDROCHLORIDE\PREDNISOLONE
     Dosage: UNK
     Dates: start: 20200508
  100. PLATELETS [Concomitant]
     Active Substance: HUMAN PLATELET, ALLOGENIC
     Indication: Product used for unknown indication
     Dosage: 1 DOSAGE FORM, QD
     Route: 065
     Dates: start: 20200323
  101. BACTRIM [Concomitant]
     Active Substance: SULFAMETHOXAZOLE\TRIMETHOPRIM
     Dosage: 400/80 MG QD
     Route: 065
     Dates: start: 20200323
  102. XYLOCAINE [Concomitant]
     Active Substance: LIDOCAINE HYDROCHLORIDE
     Indication: Product used for unknown indication
     Dosage: 1 DOSAGE FORM, QD
     Route: 065
     Dates: start: 20200323
  103. OMEPRAZOLE [Concomitant]
     Active Substance: OMEPRAZOLE
     Indication: Product used for unknown indication
     Dosage: 20 MILLIGRAM, BID
     Route: 065
     Dates: start: 20200323
  104. CAFFEINE [Concomitant]
     Active Substance: CAFFEINE
     Dosage: 1 DOSAGE FORM, QD
     Route: 065
     Dates: start: 20200323
  105. OXAZEPAM [Concomitant]
     Active Substance: OXAZEPAM
     Indication: Product used for unknown indication
     Dosage: 1 DOSAGE FORM, QD
     Route: 065
     Dates: start: 20200323
  106. FLUCONAZOLE [Concomitant]
     Active Substance: FLUCONAZOLE
     Indication: Product used for unknown indication
     Dosage: 1 DOSAGE FORM, QD
     Route: 065
     Dates: start: 20200323
  107. ONDANSETRON [Concomitant]
     Active Substance: ONDANSETRON
     Dosage: 1 DOSAGE FORM, QD
     Route: 065
     Dates: start: 20200323
  108. PENICILLIN V [Concomitant]
     Active Substance: PENICILLIN V
     Indication: Product used for unknown indication
     Dosage: 2 DOSAGE FORM, QD
     Route: 065
     Dates: start: 20200323
  109. OMEPRAZOLE [Concomitant]
     Active Substance: OMEPRAZOLE
     Indication: Product used for unknown indication
     Dosage: UNK, BID
     Route: 065
     Dates: start: 20200508
  110. FLUCONAZOLE [Concomitant]
     Active Substance: FLUCONAZOLE
     Indication: Product used for unknown indication
     Dosage: UNK
     Route: 065
     Dates: start: 20200508
  111. METOCLOPRAMIDE [Concomitant]
     Active Substance: METOCLOPRAMIDE
     Indication: Product used for unknown indication
     Route: 065
  112. NITROGLYCERIN [Concomitant]
     Active Substance: NITROGLYCERIN
     Indication: Product used for unknown indication
     Dosage: UNK
     Route: 065
     Dates: start: 20200508
  113. FURIX [Concomitant]
     Indication: Product used for unknown indication
     Dosage: UNK, QD
     Route: 065
     Dates: start: 20200508
  114. SCHERIPROCT [CINCHOCAINE HYDROCHLORIDE;CLEMIZOLE UNDECYLENATE;HEXACHLO [Concomitant]
     Indication: Product used for unknown indication
     Dosage: UNK
     Route: 065
     Dates: start: 20200508
  115. MEROPENEM [Concomitant]
     Active Substance: MEROPENEM
     Indication: Product used for unknown indication
     Route: 065
  116. ORUDIS [Concomitant]
     Active Substance: KETOPROFEN
     Indication: Product used for unknown indication
     Route: 065
  117. SODIUM BICARBONATE [Concomitant]
     Active Substance: SODIUM BICARBONATE
     Indication: Product used for unknown indication
     Route: 065
  118. AMITRIPTYLIN ORIFARM [Concomitant]
     Indication: Product used for unknown indication
     Dosage: UNK
     Route: 065
     Dates: start: 20200508

REACTIONS (5)
  - Femur fracture [Recovered/Resolved with Sequelae]
  - Febrile neutropenia [Recovered/Resolved with Sequelae]
  - Pyrexia [Recovered/Resolved]
  - Device related infection [Recovered/Resolved with Sequelae]
  - Overdose [Unknown]

NARRATIVE: CASE EVENT DATE: 20200325
